FAERS Safety Report 8300318-6 (Version None)
Quarter: 2012Q2

REPORT INFORMATION
  Report Type: 
  Country: None (occurrence: None)
  Receive Date: 20120420
  Receipt Date: 20120412
  Transmission Date: 20120825
  Serious: Yes (Other)
  Sender: FDA-Public Use
  Company Number: US-BAYER-2012-009173

PATIENT
  Age: 27 Year
  Sex: Female
  Weight: 86.168 kg

DRUGS (2)
  1. YAZ [Suspect]
     Indication: CONTRACEPTION
     Dosage: UNK
     Dates: start: 20100106, end: 20100126
  2. YAZ [Suspect]
     Indication: ACNE

REACTIONS (1)
  - DEEP VEIN THROMBOSIS [None]
